FAERS Safety Report 5596575-X (Version None)
Quarter: 2007Q4

REPORT INFORMATION
  Report Type: 
  Country: None (occurrence: None)
  Receive Date: 20071219
  Receipt Date: 20070926
  Transmission Date: 20080405
  Serious: No
  Sender: FDA-Public Use
  Company Number: HQWYE345327SEP07

PATIENT
  Age: 52 Year
  Sex: Male

DRUGS (14)
  1. TORISEL [Suspect]
     Indication: RENAL CELL CARCINOMA STAGE UNSPECIFIED
     Dosage: 25 MG 1X PER 1 WK, INTRAVENOUS
     Route: 042
  2. COMPAZINE (PROCHLORPERAZINE EDISYLATE) [Concomitant]
  3. NORVASC [Concomitant]
  4. ALLEGRA [Concomitant]
  5. PROTONIX [Concomitant]
  6. LORTAB [Concomitant]
  7. XANAX [Concomitant]
  8. REQUIP [Concomitant]
  9. NASONEX [Concomitant]
  10. LOPRESSOR [Concomitant]
  11. PROZAC [Concomitant]
  12. AMBIEN [Concomitant]
  13. DIOVAN HCT [Concomitant]
  14. PRILOSEC [Concomitant]

REACTIONS (3)
  - RASH ERYTHEMATOUS [None]
  - RASH MACULO-PAPULAR [None]
  - RASH PRURITIC [None]
